FAERS Safety Report 4637157-3 (Version None)
Quarter: 2005Q2

REPORT INFORMATION
  Report Type: 
  Country: None (occurrence: None)
  Receive Date: 20050325
  Receipt Date: 20041220
  Transmission Date: 20051028
  Serious: No
  Sender: FDA-Public Use
  Company Number: USA040977871

PATIENT
  Age: 70 Year
  Sex: Female

DRUGS (2)
  1. FORTEO [Suspect]
     Indication: OSTEOPOROSIS
     Dosage: 20 UG DAY
     Dates: start: 20040401, end: 20040907
  2. FOSAMAX [Concomitant]

REACTIONS (6)
  - ASTHENIA [None]
  - FATIGUE [None]
  - NAUSEA [None]
  - PRURITUS [None]
  - SOMNOLENCE [None]
  - WHITE BLOOD CELL COUNT INCREASED [None]
